FAERS Safety Report 18979250 (Version 3)
Quarter: 2021Q3

REPORT INFORMATION
  Report Type: Report from Study
  Country: US (occurrence: US)
  Receive Date: 20210308
  Receipt Date: 20210909
  Transmission Date: 20211014
  Serious: No
  Sender: FDA-Public Use
  Company Number: NVSC2021US051736

PATIENT
  Age: 58 Year
  Sex: Male

DRUGS (1)
  1. ENTRESTO [Suspect]
     Active Substance: SACUBITRIL\VALSARTAN
     Indication: PRODUCT USED FOR UNKNOWN INDICATION
     Dosage: 1 DF, BID (24/26MG)
     Route: 048
     Dates: start: 20210220

REACTIONS (6)
  - Rash [Unknown]
  - Skin haemorrhage [Unknown]
  - Dry skin [Unknown]
  - Chest pain [Unknown]
  - Weight increased [Unknown]
  - Hernia [Unknown]

NARRATIVE: CASE EVENT DATE: 20210225
